FAERS Safety Report 16197358 (Version 1)
Quarter: 2019Q2

REPORT INFORMATION
  Report Type: Spontaneous
  Country: JP (occurrence: JP)
  Receive Date: 20190415
  Receipt Date: 20190415
  Transmission Date: 20190711
  Serious: Yes (Life-Threatening, Other)
  Sender: FDA-Public Use
  Company Number: JP-ROCHE-2281280

PATIENT
  Age: 75 Year
  Sex: Female
  Weight: 42 kg

DRUGS (9)
  1. ALECENSA [Suspect]
     Active Substance: ALECTINIB HYDROCHLORIDE
     Route: 048
     Dates: start: 20161025, end: 20190225
  2. MOHRUS TAPE L [Concomitant]
     Active Substance: KETOPROFEN
     Route: 061
  3. MAGNESIUM OXIDE. [Concomitant]
     Active Substance: MAGNESIUM OXIDE
     Dosage: TAKEN FOR CONSTIPATION?UP TO 3 TIMES A DAY
     Route: 048
     Dates: start: 20190307, end: 2019
  4. ALECENSA [Suspect]
     Active Substance: ALECTINIB HYDROCHLORIDE
     Route: 048
     Dates: start: 20160927, end: 20161024
  5. ALECENSA [Suspect]
     Active Substance: ALECTINIB HYDROCHLORIDE
     Route: 048
     Dates: start: 20160803, end: 20160926
  6. FUROSEMIDE. [Concomitant]
     Active Substance: FUROSEMIDE
  7. ALECENSA [Suspect]
     Active Substance: ALECTINIB HYDROCHLORIDE
     Indication: NON-SMALL CELL LUNG CANCER
     Route: 048
     Dates: start: 20150121, end: 20160802
  8. AMLODIPINE [Concomitant]
     Active Substance: AMLODIPINE BESYLATE
     Route: 048
     Dates: start: 20190116
  9. MAGNESIUM OXIDE. [Concomitant]
     Active Substance: MAGNESIUM OXIDE
     Indication: CONSTIPATION
     Route: 048
     Dates: start: 20190116, end: 2019

REACTIONS (3)
  - Pulmonary hypertension [Unknown]
  - Interstitial lung disease [Recovering/Resolving]
  - Hepatic cyst [Unknown]

NARRATIVE: CASE EVENT DATE: 20190226
